FAERS Safety Report 13095551 (Version 1)
Quarter: 2017Q1

REPORT INFORMATION
  Report Type: Spontaneous
  Country: US (occurrence: US)
  Receive Date: 20170108
  Receipt Date: 20170108
  Transmission Date: 20170428
  Serious: No
  Sender: FDA-Public Use
  Company Number: US-GRANULES INDIA LIMITED-1061748

PATIENT
  Age: 18 Year

DRUGS (1)
  1. IBUPROFEN. [Suspect]
     Active Substance: IBUPROFEN
     Indication: NASOPHARYNGITIS

REACTIONS (1)
  - Ear swelling [Recovered/Resolved]
